FAERS Safety Report 4629244-0 (Version None)
Quarter: 2005Q2

REPORT INFORMATION
  Report Type: 
  Country: None (occurrence: None)
  Receive Date: 20050404
  Receipt Date: 20050404
  Transmission Date: 20051028
  Serious: Yes (Other)
  Sender: FDA-Public Use
  Company Number: None

PATIENT
  Sex: Female
  Weight: 42.3 kg

DRUGS (1)
  1. CLONAZEPAM [Suspect]

REACTIONS (1)
  - NO ADVERSE EFFECT [None]
